FAERS Safety Report 7241190-5 (Version None)
Quarter: 2011Q1

REPORT INFORMATION
  Report Type: 
  Country: None (occurrence: None)
  Receive Date: 20110124
  Receipt Date: 20110113
  Transmission Date: 20110831
  Serious: Yes (Other)
  Sender: FDA-Public Use
  Company Number: US-ROCHE-740791

PATIENT
  Sex: Male
  Weight: 61.2 kg

DRUGS (1)
  1. ACCUTANE [Suspect]
     Indication: ACNE
     Route: 065
     Dates: start: 20001001, end: 20010401

REACTIONS (3)
  - DIVERTICULUM INTESTINAL [None]
  - INTESTINAL OBSTRUCTION [None]
  - DIVERTICULITIS [None]
